FAERS Safety Report 8902257 (Version 1)
Quarter: 2012Q4

REPORT INFORMATION
  Report Type: 
  Country: CL (occurrence: CL)
  Receive Date: 20121112
  Receipt Date: 20121112
  Transmission Date: 20130627
  Serious: Yes (Other)
  Sender: FDA-Public Use
  Company Number: PHHY2012CL103616

PATIENT

DRUGS (1)
  1. GILENYA [Suspect]
     Dosage: 0.5 mg, UNK
     Route: 048

REACTIONS (1)
  - Road traffic accident [Unknown]
